FAERS Safety Report 24085602 (Version 5)
Quarter: 2024Q4

REPORT INFORMATION
  Report Type: Spontaneous
  Country: LT (occurrence: LT)
  Receive Date: 20240712
  Receipt Date: 20241129
  Transmission Date: 20250115
  Serious: Yes (Death)
  Sender: ALEXION PHARMACEUTICALS
  Company Number: 2024A155332

PATIENT
  Age: 74 Year

DRUGS (7)
  1. DAPAGLIFLOZIN [Suspect]
     Active Substance: DAPAGLIFLOZIN
     Dosage: 10 MILLIGRAM, QD
  2. METFORMIN HYDROCHLORIDE [Suspect]
     Active Substance: METFORMIN HYDROCHLORIDE
     Indication: Type 2 diabetes mellitus
     Dosage: 500 MILLIGRAM, QD
  3. METFORMIN HYDROCHLORIDE [Suspect]
     Active Substance: METFORMIN HYDROCHLORIDE
     Indication: Type 2 diabetes mellitus
     Dosage: 500 MILLIGRAM (IN THE EVENING, BUT NOT EVERY DAY)
  4. METOPROLOL [Concomitant]
     Active Substance: METOPROLOL
     Indication: Hypertension
     Dosage: 95 MILLIGRAM, Q12H
  5. XARELTO [Concomitant]
     Active Substance: RIVAROXABAN
     Indication: Cardiac failure
     Dosage: 20 MILLIGRAM, QD
  6. RILMENIDINE [Concomitant]
     Active Substance: RILMENIDINE
     Indication: Hypertension
     Dosage: 1 MILLIGRAM, Q12H
  7. Trifas [Concomitant]
     Indication: Oedema peripheral
     Dosage: UNK (ONCE OR TWICE A WEEK)

REACTIONS (6)
  - Vaginal odour [Recovered/Resolved]
  - Urticaria [Recovered/Resolved]
  - Underdose [Fatal]
  - Inappropriate schedule of product administration [Fatal]
  - Underdose [Not Recovered/Not Resolved]
  - Intentional product use issue [Not Recovered/Not Resolved]
